FAERS Safety Report 9668314 (Version 1)
Quarter: 2013Q4

REPORT INFORMATION
  Report Type: Spontaneous
  Country: GB (occurrence: GB)
  Receive Date: 20131104
  Receipt Date: 20131104
  Transmission Date: 20140711
  Serious: Yes (Other)
  Sender: FDA-Public Use
  Company Number: PHHY2013GB120149

PATIENT
  Age: 20 Year
  Sex: Female
  Weight: 59.87 kg

DRUGS (6)
  1. MIRTAZAPINE [Suspect]
     Indication: DEPRESSION
     Dosage: 15 MG, QD
     Route: 048
  2. SERTRALINE [Concomitant]
  3. PREGABALIN [Concomitant]
  4. MACROGOL [Concomitant]
  5. CYCLIZINE [Concomitant]
  6. MALIC ACID [Concomitant]

REACTIONS (5)
  - Mood altered [Unknown]
  - Anger [Unknown]
  - Frustration [Unknown]
  - Intentional self-injury [Unknown]
  - Aggression [Unknown]
